FAERS Safety Report 8237120-X (Version None)
Quarter: 2012Q1

REPORT INFORMATION
  Report Type: 
  Country: None (occurrence: None)
  Receive Date: 20120326
  Receipt Date: 20120326
  Transmission Date: 20120608
  Serious: Yes (Disabling)
  Sender: FDA-Public Use
  Company Number: None

PATIENT
  Sex: Female
  Weight: 49.4421 kg

DRUGS (2)
  1. TRAVATAN [Suspect]
     Dosage: 1 @DAY
  2. COMBIGAN [Suspect]
     Dosage: 2@DAY

REACTIONS (6)
  - DIZZINESS [None]
  - CEREBROVASCULAR ACCIDENT [None]
  - VERTIGO [None]
  - BLINDNESS UNILATERAL [None]
  - THINKING ABNORMAL [None]
  - DISORIENTATION [None]
